FAERS Safety Report 4447761-3 (Version None)
Quarter: 2004Q3

REPORT INFORMATION
  Report Type: 
  Country: None (occurrence: None)
  Receive Date: 20040913
  Receipt Date: 20040831
  Transmission Date: 20050211
  Serious: Yes (Other)
  Sender: FDA-Public Use
  Company Number: 200418739GDDC

PATIENT
  Sex: 0

DRUGS (1)
  1. NASACORT AQ [Suspect]
     Dosage: DOSE: UNK
     Route: 045

REACTIONS (1)
  - CATARACT [None]
